FAERS Safety Report 25846752 (Version 1)
Quarter: 2025Q3

REPORT INFORMATION
  Report Type: Report from Study
  Country: CA (occurrence: CA)
  Receive Date: 20250925
  Receipt Date: 20250925
  Transmission Date: 20251020
  Serious: Yes (Hospitalization, Other)
  Sender: CELLTRION
  Company Number: CA-CELLTRION INC.-2025CA033931

PATIENT

DRUGS (7)
  1. OMALIZUMAB [Suspect]
     Active Substance: OMALIZUMAB
     Indication: Asthma
     Route: 058
  2. OMALIZUMAB [Suspect]
     Active Substance: OMALIZUMAB
     Dosage: 375.0 MILLIGRAM, 1 EVERY 2 WEEK
     Route: 058
  3. BUDESONIDE\FORMOTEROL FUMARATE [Concomitant]
     Active Substance: BUDESONIDE\FORMOTEROL FUMARATE
     Indication: Product used for unknown indication
     Route: 065
  4. CETIRIZINE [Concomitant]
     Active Substance: CETIRIZINE HYDROCHLORIDE
     Indication: Product used for unknown indication
     Route: 065
  5. PULMICORT TURBUHALER [Concomitant]
     Active Substance: BUDESONIDE
     Indication: Product used for unknown indication
     Route: 065
  6. ALBUTEROL [Concomitant]
     Active Substance: ALBUTEROL
     Indication: Product used for unknown indication
     Route: 005
  7. SYNTHROID [Concomitant]
     Active Substance: LEVOTHYROXINE SODIUM
     Indication: Product used for unknown indication
     Route: 065

REACTIONS (27)
  - Allergy to animal [Unknown]
  - Allergy to chemicals [Unknown]
  - Chest discomfort [Unknown]
  - Asthma [Unknown]
  - Discomfort [Unknown]
  - Dyspnoea [Unknown]
  - Forced expiratory volume decreased [Unknown]
  - Heart rate decreased [Unknown]
  - Insomnia [Unknown]
  - Middle insomnia [Unknown]
  - Nasal congestion [Unknown]
  - Perfume sensitivity [Unknown]
  - Rhinorrhoea [Unknown]
  - Sensitivity to weather change [Unknown]
  - Sleep disorder [Unknown]
  - Smoke sensitivity [Unknown]
  - Sneezing [Unknown]
  - Stress [Unknown]
  - Tachycardia [Unknown]
  - Terminal insomnia [Unknown]
  - Wheezing [Unknown]
  - Cough [Unknown]
  - Injection site erythema [Unknown]
  - Dyspepsia [Unknown]
  - Injection site urticaria [Unknown]
  - Weight increased [Unknown]
  - Off label use [Unknown]
